FAERS Safety Report 23897036 (Version 1)
Quarter: 2024Q2

REPORT INFORMATION
  Report Type: Spontaneous
  Country: US (occurrence: US)
  Receive Date: 20240524
  Receipt Date: 20240524
  Transmission Date: 20240715
  Serious: No
  Sender: FDA-Public Use
  Company Number: US-ELI_LILLY_AND_COMPANY-US202405014227

PATIENT
  Age: 42 Year
  Sex: Female

DRUGS (3)
  1. TALTZ [Interacting]
     Active Substance: IXEKIZUMAB
     Indication: Product used for unknown indication
     Dosage: 160 MG, SINGLE (LOADING DOSE)
     Route: 065
     Dates: start: 20240329
  2. TALTZ [Interacting]
     Active Substance: IXEKIZUMAB
     Dosage: 80 MG, OTHER (EVERY TWO WEEKS)
     Route: 065
  3. TOPIRAMATE [Interacting]
     Active Substance: TOPIRAMATE
     Indication: Product used for unknown indication
     Dosage: UNK UNK, UNKNOWN
     Route: 065
     Dates: start: 202403

REACTIONS (6)
  - Drug interaction [Unknown]
  - Palpitations [Unknown]
  - Angina pectoris [Unknown]
  - Pulmonary pain [Unknown]
  - Chest discomfort [Recovering/Resolving]
  - Nasopharyngitis [Unknown]

NARRATIVE: CASE EVENT DATE: 20240517
